FAERS Safety Report 19686746 (Version 1)
Quarter: 2021Q3

REPORT INFORMATION
  Report Type: Report from Study
  Country: US (occurrence: US)
  Receive Date: 20210811
  Receipt Date: 20210811
  Transmission Date: 20211014
  Serious: Yes (Other)
  Sender: FDA-Public Use
  Company Number: US-ASTRAZENECA-2021A665746

PATIENT
  Sex: Male

DRUGS (1)
  1. LYNPARZA [Suspect]
     Active Substance: OLAPARIB
     Indication: RECTAL CANCER
     Route: 048
     Dates: start: 20210604

REACTIONS (3)
  - Lethargy [Unknown]
  - Nausea [Unknown]
  - Malignant neoplasm progression [Unknown]
